FAERS Safety Report 6438388-2 (Version None)
Quarter: 2009Q4

REPORT INFORMATION
  Report Type: 
  Country: None (occurrence: None)
  Receive Date: 20091109
  Receipt Date: 20091024
  Transmission Date: 20100525
  Serious: Yes (Hospitalization, Other)
  Sender: FDA-Public Use
  Company Number: ENTC2009-0378

PATIENT
  Age: 68 Year
  Sex: Male

DRUGS (4)
  1. STALEVO 100 [Suspect]
     Dosage: 300 TO 400 MG PER DAY ORAL; 900 MG PER DAY (6 DIVIDED DOSES) ORAL
     Route: 048
  2. LYRICA [Concomitant]
  3. ATIVAN [Concomitant]
  4. ANTIHYPERTENSIVES (NO INGREDIENTS/SUBSTANCES) [Concomitant]

REACTIONS (7)
  - AGITATION [None]
  - ANXIETY [None]
  - DEPRESSION [None]
  - HERPES ZOSTER [None]
  - INSOMNIA [None]
  - MUSCLE TWITCHING [None]
  - NIGHTMARE [None]
